FAERS Safety Report 9246853 (Version 1)
Quarter: 2013Q2

REPORT INFORMATION
  Report Type: Spontaneous
  Country: US (occurrence: US)
  Receive Date: 20130422
  Receipt Date: 20130422
  Transmission Date: 20140414
  Serious: Yes (Hospitalization)
  Sender: FDA-Public Use
  Company Number: US-GLAXOSMITHKLINE-A0787812A

PATIENT
  Age: 57 Year
  Sex: Female

DRUGS (1)
  1. AVANDIA [Suspect]
     Indication: TYPE 2 DIABETES MELLITUS
     Route: 048
     Dates: start: 19991214, end: 200703

REACTIONS (6)
  - Cerebrovascular accident [Not Recovered/Not Resolved]
  - Aphasia [Unknown]
  - Immobile [Unknown]
  - Amnesia [Unknown]
  - Bone disorder [Unknown]
  - Anxiety [Unknown]
